FAERS Safety Report 24534441 (Version 2)
Quarter: 2025Q3

REPORT INFORMATION
  Report Type: Report from Study
  Country: CA (occurrence: CA)
  Receive Date: 20241022
  Receipt Date: 20250902
  Transmission Date: 20251020
  Serious: Yes (Hospitalization, Other)
  Sender: GLAXOSMITHKLINE
  Company Number: CA-GLAXOSMITHKLINE-CA2023125920

PATIENT
  Age: 54 Year
  Sex: Male

DRUGS (1)
  1. MEPOLIZUMAB [Suspect]
     Active Substance: MEPOLIZUMAB
     Indication: Asthma
     Dosage: 100 MG, Q4W

REACTIONS (11)
  - Hospitalisation [Recovered/Resolved]
  - Pneumonia [Unknown]
  - Weight decreased [Not Recovered/Not Resolved]
  - Haemoptysis [Unknown]
  - Dyspnoea exertional [Unknown]
  - Asthma [Unknown]
  - Activities of daily living decreased [Unknown]
  - Bronchial disorder [Unknown]
  - Drug ineffective [Unknown]
  - Inappropriate schedule of product administration [Unknown]
  - Product dose omission in error [Unknown]

NARRATIVE: CASE EVENT DATE: 20230401
